FAERS Safety Report 4838485-9 (Version None)
Quarter: 2005Q4

REPORT INFORMATION
  Report Type: 
  Country: None (occurrence: None)
  Receive Date: 20051123
  Receipt Date: 20051114
  Transmission Date: 20060501
  Serious: Yes (Other)
  Sender: FDA-Public Use
  Company Number: HECT-10140

PATIENT
  Age: 51 Year
  Sex: Male
  Weight: 92.5338 kg

DRUGS (7)
  1. HECTOROL [Suspect]
     Indication: HYPERPARATHYROIDISM SECONDARY
     Dosage: 0.5 MG QD PO
     Route: 048
     Dates: start: 20050422, end: 20051001
  2. SODIUM BICARBONATE [Concomitant]
  3. OMEGA-3 FATTY ACIDS [Concomitant]
  4. TORSEMIDE [Concomitant]
  5. LIPITOR [Concomitant]
  6. COREG [Concomitant]
  7. PLAVIX [Concomitant]

REACTIONS (2)
  - NEPHRITIS INTERSTITIAL [None]
  - PRURITUS [None]
